FAERS Safety Report 6266308-2 (Version None)
Quarter: 2009Q3

REPORT INFORMATION
  Report Type: 
  Country: None (occurrence: None)
  Receive Date: 20090713
  Receipt Date: 20090703
  Transmission Date: 20100115
  Serious: Yes (Hospitalization, Other)
  Sender: FDA-Public Use
  Company Number: PHHY2009MX25858

PATIENT
  Age: 79 Year
  Sex: Female

DRUGS (2)
  1. ACLASTA [Suspect]
     Indication: OSTEOPOROSIS
     Dosage: 5 MG/100 ML
     Dates: start: 20070801
  2. ACLASTA [Suspect]
     Dosage: 5 MG/100 ML
     Dates: start: 20080801

REACTIONS (3)
  - ARTERIAL ANEURYSM REPAIR [None]
  - ARTERIAL BRUIT [None]
  - PERIPHERAL ARTERY ANEURYSM [None]
